FAERS Safety Report 5270541-6 (Version None)
Quarter: 2007Q1

REPORT INFORMATION
  Report Type: 
  Country: None (occurrence: None)
  Receive Date: 20070315
  Receipt Date: 20070228
  Transmission Date: 20070707
  Serious: Yes (Hospitalization)
  Sender: FDA-Public Use
  Company Number: LF022807

PATIENT
  Sex: Male
  Weight: 70.7611 kg

DRUGS (1)
  1. LAZERFORMALYDE SOLUTION (FORMALDEHYDE 10%) [Suspect]
     Indication: WART EXCISION
     Dosage: APPLIED ONCE - TOPICAL
     Route: 061
     Dates: start: 20070101

REACTIONS (2)
  - ANAPHYLACTIC REACTION [None]
  - REACTION TO DRUG EXCIPIENTS [None]
